FAERS Safety Report 17081594 (Version 1)
Quarter: 2019Q4

REPORT INFORMATION
  Report Type: Spontaneous
  Country: US (occurrence: US)
  Receive Date: 20191126
  Receipt Date: 20191126
  Transmission Date: 20200122
  Serious: Yes (Hospitalization)
  Sender: FDA-Public Use
  Company Number: None

PATIENT
  Age: 62 Year
  Sex: Male

DRUGS (9)
  1. XELJANZ [Suspect]
     Active Substance: TOFACITINIB CITRATE
     Indication: RHEUMATOID ARTHRITIS
     Route: 048
  2. CARVEDIOL [Concomitant]
     Active Substance: CARVEDILOL
  3. BRILINTA [Concomitant]
     Active Substance: TICAGRELOR
  4. AMILOR/HCTZ [Concomitant]
  5. METFORMIN [Concomitant]
     Active Substance: METFORMIN HYDROCHLORIDE
  6. NEXIUM [Concomitant]
     Active Substance: ESOMEPRAZOLE MAGNESIUM
  7. HYSINGLA ER [Concomitant]
     Active Substance: HYDROCODONE BITARTRATE
  8. IBUPROFEN. [Concomitant]
     Active Substance: IBUPROFEN
  9. ASPIRIN. [Concomitant]
     Active Substance: ASPIRIN

REACTIONS (3)
  - Adverse drug reaction [None]
  - Therapy cessation [None]
  - Immunosuppression [None]
